FAERS Safety Report 6457946-2 (Version None)
Quarter: 2009Q4

REPORT INFORMATION
  Report Type: 
  Country: None (occurrence: None)
  Receive Date: 20091125
  Receipt Date: 20091020
  Transmission Date: 20100525
  Serious: Yes (Life-Threatening, Hospitalization)
  Sender: FDA-Public Use
  Company Number: IT-SANOFI-AVENTIS-F01200900709

PATIENT
  Age: 41 Year
  Sex: Male
  Weight: 84 kg

DRUGS (10)
  1. OXALIPLATIN [Suspect]
     Dosage: UNIT DOSE: 85 MG/M2
     Route: 041
     Dates: start: 20090721, end: 20090721
  2. AFLIBERCEPT [Suspect]
     Dosage: UNIT DOSE: 4 MG/KG
     Route: 042
     Dates: start: 20090721, end: 20090721
  3. FLUOROURACIL [Suspect]
     Dosage: UNIT DOSE: 2800 MG/M2
     Route: 042
     Dates: start: 20090721, end: 20090721
  4. LEUCOVORIN CALCIUM [Suspect]
     Dosage: UNIT DOSE: 175 MG/M2
     Route: 042
     Dates: start: 20090721, end: 20090721
  5. PAROXETINE HCL [Concomitant]
     Route: 065
  6. DIFLUCAN [Concomitant]
     Dates: end: 20090729
  7. IMIPENEM AND CILASTATIN SODIUM [Concomitant]
  8. METRONIDAZOLE [Concomitant]
     Dates: end: 20090801
  9. ZANTAC [Concomitant]
     Dates: end: 20090726
  10. LONGASTATINA [Concomitant]
     Dates: start: 20090722, end: 20090802

REACTIONS (1)
  - INTESTINAL PERFORATION [None]
